FAERS Safety Report 13210365 (Version 3)
Quarter: 2019Q4

REPORT INFORMATION
  Report Type: Spontaneous
  Country: JP (occurrence: JP)
  Receive Date: 20170210
  Receipt Date: 20191213
  Transmission Date: 20200122
  Serious: Yes (Life-Threatening, Hospitalization)
  Sender: FDA-Public Use
  Company Number: JP-ELI_LILLY_AND_COMPANY-JP201702003541

PATIENT
  Age: 55 Year
  Sex: Male

DRUGS (5)
  1. FLUOROURACIL. [Suspect]
     Active Substance: FLUOROURACIL
     Indication: COLORECTAL CANCER
     Dosage: UNK UNK, UNKNOWN
     Route: 065
     Dates: end: 20150129
  2. ELPLAT [Suspect]
     Active Substance: OXALIPLATIN
     Indication: COLORECTAL CANCER
     Dosage: 150 DF, UNKNOWN
     Route: 042
     Dates: start: 20140213, end: 20150122
  3. BOSMIN                             /00003901/ [Suspect]
     Active Substance: EPINEPHRINE
     Indication: ANAPHYLACTIC SHOCK
     Dosage: 0.3 MG, UNKNOWN
     Route: 030
     Dates: start: 20150122, end: 20150122
  4. ERBITUX [Suspect]
     Active Substance: CETUXIMAB
     Indication: COLORECTAL CANCER
     Dosage: 720 MG, WEEKLY (1/W)
     Route: 042
     Dates: start: 20150117, end: 20150122
  5. ISOVORIN [Suspect]
     Active Substance: LEUCOVORIN CALCIUM
     Indication: COLORECTAL CANCER
     Dosage: 300 DF, UNKNOWN
     Route: 065
     Dates: start: 20140213, end: 20150122

REACTIONS (2)
  - Prinzmetal angina [Recovered/Resolved]
  - Anaphylactic shock [Recovered/Resolved]

NARRATIVE: CASE EVENT DATE: 20150122
